FAERS Safety Report 4873690-7 (Version None)
Quarter: 2006Q1

REPORT INFORMATION
  Report Type: 
  Country: None (occurrence: None)
  Receive Date: 20060104
  Receipt Date: 20060104
  Transmission Date: 20060701
  Serious: Yes (Life-Threatening)
  Sender: FDA-Public Use
  Company Number: None

PATIENT
  Age: 49 Year
  Sex: 0

DRUGS (3)
  1. XANAX [Suspect]
  2. LORCET-HD [Suspect]
  3. MUSCLE RELAXANT [Concomitant]

REACTIONS (1)
  - OVERDOSE [None]
